FAERS Safety Report 8095040-8 (Version None)
Quarter: 2012Q1

REPORT INFORMATION
  Report Type: 
  Country: None (occurrence: None)
  Receive Date: 20120131
  Receipt Date: 20120131
  Transmission Date: 20120608
  Serious: Yes (Hospitalization)
  Sender: FDA-Public Use
  Company Number: None

PATIENT
  Sex: Female
  Weight: 53.5 kg

DRUGS (4)
  1. SOMA [Concomitant]
  2. IBUPROFEN [Concomitant]
  3. EXJADE [Suspect]
     Indication: IRON OVERLOAD
     Dosage: 1000 MG
     Route: 048
     Dates: start: 20120102, end: 20120113
  4. EXJADE [Suspect]
     Indication: TRANSFUSION
     Dosage: 1000 MG
     Route: 048
     Dates: start: 20120102, end: 20120113

REACTIONS (12)
  - ARTHRALGIA [None]
  - MUSCLE SPASMS [None]
  - TACHYCARDIA [None]
  - DYSPNOEA [None]
  - RASH PRURITIC [None]
  - PYREXIA [None]
  - RASH [None]
  - MYALGIA [None]
  - OEDEMA PERIPHERAL [None]
  - HYPERSENSITIVITY [None]
  - SWELLING FACE [None]
  - NEUTROPENIA [None]
